FAERS Safety Report 4543909-0 (Version None)
Quarter: 2005Q1

REPORT INFORMATION
  Report Type: 
  Country: None (occurrence: None)
  Receive Date: 20050103
  Receipt Date: 20041213
  Transmission Date: 20050727
  Serious: Yes (Disabling, Other)
  Sender: FDA-Public Use
  Company Number: GXKR2004GB00598

PATIENT
  Age: 29 Year
  Sex: Male

DRUGS (1)
  1. METRONIDAZOLE [Suspect]
     Indication: INFECTION PROPHYLAXIS
     Dosage: 1, TID, ORAL
     Route: 048
     Dates: start: 20040924, end: 20040928

REACTIONS (13)
  - DYSPHAGIA [None]
  - DYSPNOEA [None]
  - GINGIVAL ULCERATION [None]
  - LETHARGY [None]
  - MOUTH ULCERATION [None]
  - ORAL INTAKE REDUCED [None]
  - OROPHARYNGEAL SWELLING [None]
  - PHARYNGEAL ERYTHEMA [None]
  - PHARYNGEAL ULCERATION [None]
  - PHARYNGOLARYNGEAL PAIN [None]
  - PRODUCTIVE COUGH [None]
  - PYREXIA [None]
  - TONGUE ULCERATION [None]
